FAERS Safety Report 9715004 (Version 1)
Quarter: 2013Q4

REPORT INFORMATION
  Report Type: Spontaneous
  Country: US (occurrence: US)
  Receive Date: 20131126
  Receipt Date: 20131126
  Transmission Date: 20140711
  Serious: No
  Sender: FDA-Public Use
  Company Number: US-NOVEN-13US007703

PATIENT
  Age: 32 Year
  Sex: Female
  Weight: 228 kg

DRUGS (1)
  1. MINIVELLE [Suspect]
     Indication: HORMONE REPLACEMENT THERAPY
     Dosage: 1.0MG 3-4 X/WEEK
     Route: 062
     Dates: start: 20130415, end: 20130812

REACTIONS (3)
  - Application site rash [Recovering/Resolving]
  - Inappropriate schedule of drug administration [Recovered/Resolved]
  - Off label use [Recovered/Resolved]
